FAERS Safety Report 4879901-6 (Version None)
Quarter: 2006Q1

REPORT INFORMATION
  Report Type: 
  Country: None (occurrence: None)
  Receive Date: 20060113
  Receipt Date: 20011003
  Transmission Date: 20060701
  Serious: Yes (Death, Other)
  Sender: FDA-Public Use
  Company Number: US-MERCK-01100590

PATIENT
  Age: 50 Year
  Sex: Female
  Weight: 91 kg

DRUGS (2)
  1. VIOXX [Suspect]
     Indication: SCLERODERMA
     Route: 048
     Dates: start: 20000121, end: 20000926
  2. VIOXX [Suspect]
     Indication: PAIN
     Route: 048
     Dates: start: 20000121, end: 20000926

REACTIONS (7)
  - CEREBROVASCULAR ACCIDENT [None]
  - DEATH [None]
  - EMOTIONAL DISORDER [None]
  - GASTRIC DISORDER [None]
  - GASTRITIS [None]
  - MENTAL DISORDER [None]
  - TRANSIENT ISCHAEMIC ATTACK [None]
